FAERS Safety Report 10250323 (Version 1)
Quarter: 2014Q2

REPORT INFORMATION
  Report Type: Spontaneous
  Country: US (occurrence: None)
  Receive Date: 20140618
  Receipt Date: 20140618
  Transmission Date: 20141212
  Serious: Yes (Life-Threatening)
  Sender: FDA-Public Use
  Company Number: None

PATIENT
  Age: 59 Year
  Sex: Female
  Weight: 56.7 kg

DRUGS (1)
  1. MELOXICAM 7.5MG ZYDUS PHARMACEUTICALS [Suspect]
     Route: 048
     Dates: start: 20140414, end: 20140616

REACTIONS (6)
  - Hypoaesthesia oral [None]
  - Paraesthesia oral [None]
  - Hypoaesthesia [None]
  - Abasia [None]
  - Syncope [None]
  - Cerebrovascular accident [None]
